FAERS Safety Report 6408065-2 (Version None)
Quarter: 2009Q4

REPORT INFORMATION
  Report Type: 
  Country: None (occurrence: None)
  Receive Date: 20091021
  Receipt Date: 20091013
  Transmission Date: 20100525
  Serious: Yes (Hospitalization)
  Sender: FDA-Public Use
  Company Number: TR-ELI_LILLY_AND_COMPANY-TR200910002704

PATIENT
  Sex: Female

DRUGS (5)
  1. HUMALOG [Suspect]
     Indication: TYPE 2 DIABETES MELLITUS
     Dosage: 22 U, EACH MORNING
     Route: 058
     Dates: start: 20070101
  2. HUMALOG [Suspect]
     Dosage: 22 U, EACH NOON
     Route: 058
     Dates: start: 20070101
  3. HUMALOG [Suspect]
     Dosage: 22 U, EACH EVENING
     Route: 058
     Dates: start: 20070101
  4. LANTUS [Concomitant]
     Indication: TYPE 2 DIABETES MELLITUS
     Dosage: 32 U, EACH EVENING
     Route: 058
  5. PREDNOL [Concomitant]
     Dosage: UNK UNK, DAILY (1/D)

REACTIONS (1)
  - BLOOD GLUCOSE INCREASED [None]
